FAERS Safety Report 24573850 (Version 1)
Quarter: 2024Q4

REPORT INFORMATION
  Report Type: Spontaneous
  Country: US (occurrence: US)
  Receive Date: 20241103
  Receipt Date: 20241103
  Transmission Date: 20250115
  Serious: Yes (Death, Hospitalization, Other)
  Sender: APOTEX
  Company Number: US-APOTEX-2024AP017036

PATIENT
  Age: 64 Year
  Sex: Male

DRUGS (5)
  1. DIVALPROEX SODIUM [Suspect]
     Active Substance: DIVALPROEX SODIUM
     Indication: Product used for unknown indication
     Dosage: UNK
     Route: 065
  2. KETAMINE [Suspect]
     Active Substance: KETAMINE
     Indication: Product used for unknown indication
     Dosage: UNK
     Route: 065
  3. ACETONE [Suspect]
     Active Substance: ACETONE
     Indication: Product used for unknown indication
     Dosage: UNK
     Route: 065
  4. ALCOHOL [Suspect]
     Active Substance: ALCOHOL
     Indication: Product used for unknown indication
     Dosage: UNK
     Route: 065
  5. METHYL ALCOHOL [Suspect]
     Active Substance: METHYL ALCOHOL
     Indication: Product used for unknown indication
     Dosage: UNK
     Route: 065

REACTIONS (9)
  - Acute kidney injury [Fatal]
  - Coma [Fatal]
  - Depressed level of consciousness [Fatal]
  - Respiratory depression [Fatal]
  - Electrocardiogram QT prolonged [Fatal]
  - Seizure [Fatal]
  - Hypotension [Fatal]
  - Toxicity to various agents [Fatal]
  - Hypoglycaemia [Fatal]
